FAERS Safety Report 12070013 (Version 2)
Quarter: 2016Q2

REPORT INFORMATION
  Report Type: Spontaneous
  Country: BR (occurrence: BR)
  Receive Date: 20160211
  Receipt Date: 20160429
  Transmission Date: 20160815
  Serious: Yes (Hospitalization, Other)
  Sender: FDA-Public Use
  Company Number: BR-JNJFOC-20160205652

PATIENT
  Sex: Male

DRUGS (5)
  1. REMICADE [Suspect]
     Active Substance: INFLIXIMAB
     Indication: CROHN^S DISEASE
     Route: 042
     Dates: start: 20130627
  2. CHLOROQUINE. [Concomitant]
     Active Substance: CHLOROQUINE
     Route: 065
  3. INDOMETHACIN. [Concomitant]
     Active Substance: INDOMETHACIN
     Route: 065
  4. REMICADE [Suspect]
     Active Substance: INFLIXIMAB
     Indication: CROHN^S DISEASE
     Route: 042
     Dates: start: 20151205
  5. SULFASALAZINE. [Concomitant]
     Active Substance: SULFASALAZINE
     Route: 065

REACTIONS (9)
  - Cardiovascular disorder [Unknown]
  - Incorrect product storage [Unknown]
  - Enteropathic spondylitis [Unknown]
  - Abscess [Unknown]
  - Visual impairment [Unknown]
  - Localised infection [Recovering/Resolving]
  - Diabetes mellitus [Recovering/Resolving]
  - Blood pressure increased [Unknown]
  - Perforation [Recovered/Resolved]
